FAERS Safety Report 20176959 (Version 1)
Quarter: 2021Q4

REPORT INFORMATION
  Report Type: Spontaneous
  Country: US (occurrence: US)
  Receive Date: 20211213
  Receipt Date: 20211213
  Transmission Date: 20220303
  Serious: Yes (Hospitalization)
  Sender: FDA-Public Use
  Company Number: US-BRISTOL-MYERS SQUIBB COMPANY-BMS-2021-129511

PATIENT
  Age: 50 Year
  Sex: Male
  Weight: 69.388 kg

DRUGS (4)
  1. BELATACEPT [Suspect]
     Active Substance: BELATACEPT
     Indication: Renal transplant
     Dosage: UNK
     Route: 065
     Dates: start: 20211008
  2. BELATACEPT [Suspect]
     Active Substance: BELATACEPT
     Dosage: 637.5 MILLIGRAM
     Route: 042
     Dates: start: 20211105
  3. VALGANCICLOVIR [Concomitant]
     Active Substance: VALGANCICLOVIR
     Indication: Cytomegalovirus infection
     Dosage: 450 MILLIGRAM, QD
     Route: 065
     Dates: end: 20211012
  4. MYCOPHENOLIC ACID [Concomitant]
     Active Substance: MYCOPHENOLIC ACID
     Indication: Product used for unknown indication
     Dosage: 500 MILLIGRAM, BID
     Route: 065

REACTIONS (4)
  - Metapneumovirus infection [Unknown]
  - Diarrhoea [Unknown]
  - Blood creatinine increased [Unknown]
  - Prescribed underdose [Unknown]

NARRATIVE: CASE EVENT DATE: 20211129
